FAERS Safety Report 7687200-2 (Version None)
Quarter: 2011Q3

REPORT INFORMATION
  Report Type: 
  Country: None (occurrence: None)
  Receive Date: 20110816
  Receipt Date: 20110803
  Transmission Date: 20111222
  Serious: Yes (Other)
  Sender: FDA-Public Use
  Company Number: DE-CELGENEUS-062-21880-10020438

PATIENT
  Age: 67 Year
  Sex: Female
  Weight: 66 kg

DRUGS (10)
  1. REVLIMID [Suspect]
     Dosage: 10 MILLIGRAM
     Route: 048
     Dates: start: 20100119, end: 20100131
  2. SANDIMMUNE [Concomitant]
     Route: 048
     Dates: start: 20091110, end: 20090101
  3. NOXAFIL [Concomitant]
     Dosage: 20 MILLILITER
     Route: 065
     Dates: end: 20090101
  4. SULFAMETHOXAZOLE AND TRIMETHOPRIM DOUBLE STRENGTH [Concomitant]
     Route: 065
     Dates: start: 20090101
  5. ACYCLOVIR [Concomitant]
     Route: 048
     Dates: start: 20091110, end: 20090101
  6. TORSEMIDE [Concomitant]
     Dosage: 10 MILLIGRAM
     Route: 048
     Dates: start: 20090101, end: 20090101
  7. RAMIPRIL [Concomitant]
     Route: 048
     Dates: start: 20090101
  8. CIPROFLOXACIN [Concomitant]
     Route: 065
  9. METOPROLOL SUCCINATE [Concomitant]
     Route: 048
     Dates: start: 20091115, end: 20090101
  10. PANTOPRAZOLE [Concomitant]
     Dosage: 40 MILLIGRAM
     Route: 048
     Dates: start: 20090101

REACTIONS (2)
  - GRAFT VERSUS HOST DISEASE [None]
  - RASH GENERALISED [None]
